FAERS Safety Report 26128237 (Version 1)
Quarter: 2025Q4

REPORT INFORMATION
  Report Type: Spontaneous
  Country: EU (occurrence: EU)
  Receive Date: 20251207
  Receipt Date: 20251207
  Transmission Date: 20260117
  Serious: Yes (Other)
  Sender: ASTELLAS
  Company Number: EU-ASTELLAS-2025-AER-066739

PATIENT
  Age: 79 Year
  Sex: Male

DRUGS (1)
  1. XTANDI [Suspect]
     Active Substance: ENZALUTAMIDE
     Indication: Prostate cancer metastatic
     Route: 065

REACTIONS (2)
  - Prostate cancer recurrent [Unknown]
  - Drug ineffective [Recovered/Resolved]
